FAERS Safety Report 25314984 (Version 1)
Quarter: 2025Q2

REPORT INFORMATION
  Report Type: Spontaneous
  Country: US (occurrence: US)
  Receive Date: 20250514
  Receipt Date: 20250514
  Transmission Date: 20250717
  Serious: No
  Sender: SANOFI AVENTIS
  Company Number: US-SA-2025SA136325

PATIENT
  Sex: Female

DRUGS (5)
  1. DUPIXENT [Suspect]
     Active Substance: DUPILUMAB
     Indication: Nasal polyps
     Dosage: 300.000MG QOW
     Route: 058
  2. CRANBERRY [Concomitant]
     Active Substance: CRANBERRY
  3. FISH OIL [Concomitant]
     Active Substance: FISH OIL
  4. GUAIFENESIN [Concomitant]
     Active Substance: GUAIFENESIN
  5. VITAMINS [Concomitant]
     Active Substance: VITAMINS

REACTIONS (1)
  - Injection site pain [Not Recovered/Not Resolved]
